FAERS Safety Report 16542268 (Version 2)
Quarter: 2020Q2

REPORT INFORMATION
  Report Type: Spontaneous
  Country: ES (occurrence: ES)
  Receive Date: 20190708
  Receipt Date: 20200429
  Transmission Date: 20200713
  Serious: Yes (Life-Threatening, Hospitalization, Disabling)
  Sender: FDA-Public Use
  Company Number: GXKR2003ES00992

PATIENT
  Age: 75 Year
  Sex: Male

DRUGS (3)
  1. SIMVASTATIN. [Interacting]
     Active Substance: SIMVASTATIN
     Indication: TYPE IIA HYPERLIPIDAEMIA
     Dosage: 40 MG, QD
     Route: 065
     Dates: start: 1994, end: 199911
  2. DILTIAZEM. [Suspect]
     Active Substance: DILTIAZEM
     Indication: HYPERTENSION
     Dosage: 240 MG, QD
     Route: 065
     Dates: start: 199905, end: 20000201
  3. SIMVASTATIN. [Interacting]
     Active Substance: SIMVASTATIN
     Dosage: 80 MG, QD
     Route: 065
     Dates: start: 199911, end: 20000201

REACTIONS (14)
  - Hepatic failure [Recovered/Resolved]
  - Blood lactate dehydrogenase increased [Recovered/Resolved with Sequelae]
  - Myoglobin blood present [Recovered/Resolved with Sequelae]
  - Myoglobin urine present [Recovered/Resolved with Sequelae]
  - Aspartate aminotransferase increased [Recovering/Resolving]
  - Acute kidney injury [Recovered/Resolved]
  - Alanine aminotransferase increased [Recovering/Resolving]
  - Muscular weakness [Unknown]
  - Blood creatinine increased [Recovered/Resolved with Sequelae]
  - Blood creatine phosphokinase increased [Recovered/Resolved with Sequelae]
  - Blood urea increased [Recovered/Resolved with Sequelae]
  - Drug interaction [Recovered/Resolved with Sequelae]
  - Rhabdomyolysis [Recovered/Resolved with Sequelae]
  - Transaminases increased [Recovered/Resolved with Sequelae]

NARRATIVE: CASE EVENT DATE: 199903
